FAERS Safety Report 12824632 (Version 1)
Quarter: 2016Q4

REPORT INFORMATION
  Report Type: Spontaneous
  Country: US (occurrence: US)
  Receive Date: 20161007
  Receipt Date: 20161007
  Transmission Date: 20170207
  Serious: Yes (Hospitalization)
  Sender: FDA-Public Use
  Company Number: US-NOVOPROD-512996

PATIENT
  Sex: Male

DRUGS (2)
  1. HUMULIN NOS [Suspect]
     Active Substance: INSULIN HUMAN
     Indication: TYPE 1 DIABETES MELLITUS
     Route: 058
  2. NOVOLOG [Suspect]
     Active Substance: INSULIN ASPART
     Indication: TYPE 1 DIABETES MELLITUS
     Dosage: 5 UNITS TID WITH MEALS PLUS SLIDING SCALE
     Route: 058

REACTIONS (3)
  - Poor peripheral circulation [Recovering/Resolving]
  - Burns third degree [Recovered/Resolved]
  - Impaired healing [Unknown]
